FAERS Safety Report 6754053-6 (Version None)
Quarter: 2010Q2

REPORT INFORMATION
  Report Type: 
  Country: None (occurrence: None)
  Receive Date: 20100603
  Receipt Date: 20100512
  Transmission Date: 20101027
  Serious: Yes (Other)
  Sender: FDA-Public Use
  Company Number: JARND10071

PATIENT
  Age: 3 Year
  Sex: Male

DRUGS (1)
  1. LOPERAMIDE [Suspect]
     Indication: DIARRHOEA
     Route: 048

REACTIONS (4)
  - DELIRIUM [None]
  - DISORIENTATION [None]
  - HALLUCINATION [None]
  - LETHARGY [None]
